FAERS Safety Report 8139925-2 (Version None)
Quarter: 2012Q1

REPORT INFORMATION
  Report Type: 
  Country: None (occurrence: None)
  Receive Date: 20120215
  Receipt Date: 20120208
  Transmission Date: 20120608
  Serious: Yes (Death, Hospitalization)
  Sender: FDA-Public Use
  Company Number: DE-ABBOTT-11P-062-0730558-00

PATIENT
  Sex: Male
  Weight: 59 kg

DRUGS (10)
  1. ATACAND [Concomitant]
     Indication: PRODUCT USED FOR UNKNOWN INDICATION
     Route: 048
     Dates: start: 20110201
  2. AMLODIPINE [Concomitant]
     Indication: PRODUCT USED FOR UNKNOWN INDICATION
     Dosage: AMLODIPIN 10
     Route: 048
     Dates: start: 20110201
  3. MIRTAZAPINE [Concomitant]
     Indication: PRODUCT USED FOR UNKNOWN INDICATION
     Route: 048
     Dates: start: 20110201
  4. SPIRIVA [Concomitant]
     Indication: PRODUCT USED FOR UNKNOWN INDICATION
     Route: 055
     Dates: start: 20110201
  5. THEOPHYLLINE [Concomitant]
     Indication: PRODUCT USED FOR UNKNOWN INDICATION
     Dosage: THEOPHYLLIN 300 MG, 450MG DAILY
     Route: 048
     Dates: start: 20110201
  6. SYMBICORT [Concomitant]
     Indication: PRODUCT USED FOR UNKNOWN INDICATION
     Route: 055
     Dates: start: 20110201
  7. PENICILLIN [Concomitant]
     Indication: PRODUCT USED FOR UNKNOWN INDICATION
     Dosage: 15 MILLION IU THREE TIMES DAILY
     Route: 048
     Dates: start: 20090101, end: 20091122
  8. HUMIRA [Suspect]
     Indication: PSORIATIC ARTHROPATHY
     Route: 058
     Dates: start: 20091201, end: 20110207
  9. CITALOPRAM HYDROBROMIDE [Concomitant]
     Indication: PRODUCT USED FOR UNKNOWN INDICATION
     Dosage: CIPRAMIL 20
     Route: 048
     Dates: start: 20110201
  10. HUMIRA [Suspect]
     Indication: PSORIASIS

REACTIONS (7)
  - RESPIRATORY FAILURE [None]
  - METABOLIC ACIDOSIS [None]
  - SYSTEMIC INFLAMMATORY RESPONSE SYNDROME [None]
  - ORGAN FAILURE [None]
  - SEPTIC SHOCK [None]
  - RENAL FAILURE ACUTE [None]
  - HYPERKALAEMIA [None]
